FAERS Safety Report 13404941 (Version 2)
Quarter: 2017Q3

REPORT INFORMATION
  Report Type: Spontaneous
  Country: US (occurrence: US)
  Receive Date: 20170405
  Receipt Date: 20170710
  Transmission Date: 20171127
  Serious: Yes (Other)
  Sender: FDA-Public Use
  Company Number: US-BAYER-2017-058747

PATIENT
  Age: 41 Year
  Sex: Female

DRUGS (2)
  1. MIRENA [Suspect]
     Active Substance: LEVONORGESTREL
     Indication: MENORRHAGIA
     Dosage: 20 MCG/24HR, CONT
     Route: 015
     Dates: start: 2015, end: 20170411
  2. MIRENA [Suspect]
     Active Substance: LEVONORGESTREL
     Indication: DYSFUNCTIONAL UTERINE BLEEDING

REACTIONS (7)
  - Fatigue [None]
  - Feeling abnormal [None]
  - Dyspnoea [None]
  - Loss of libido [None]
  - Vision blurred [None]
  - Drug ineffective [Not Recovered/Not Resolved]
  - Asthenia [None]

NARRATIVE: CASE EVENT DATE: 2015
